FAERS Safety Report 15591616 (Version 1)
Quarter: 2018Q4

REPORT INFORMATION
  Report Type: Spontaneous
  Country: IN (occurrence: IN)
  Receive Date: 20181107
  Receipt Date: 20181107
  Transmission Date: 20190205
  Serious: Yes (Other)
  Sender: FDA-Public Use
  Company Number: IN-HQ SPECIALTY-IN-2018INT000221

PATIENT
  Age: 35 Year
  Sex: Female

DRUGS (3)
  1. CISPLATIN. [Suspect]
     Active Substance: CISPLATIN
     Indication: SQUAMOUS CELL CARCINOMA OF THE CERVIX
     Dosage: 40 MG/M2, THREE CYCLES
     Dates: start: 2014
  2. RADIOTHERAPY [Suspect]
     Active Substance: RADIATION THERAPY
     Indication: SQUAMOUS CELL CARCINOMA OF THE CERVIX
     Dosage: 50 GY IN 25 FRACTIONS
     Dates: start: 2014
  3. RADIOTHERAPY [Suspect]
     Active Substance: RADIATION THERAPY
     Dosage: 9 GY IN TWO FRACTIONS
     Dates: start: 2014

REACTIONS (1)
  - Acute myeloid leukaemia [Unknown]
